FAERS Safety Report 12563197 (Version 2)
Quarter: 2017Q1

REPORT INFORMATION
  Report Type: Spontaneous
  Country: US (occurrence: US)
  Receive Date: 20160715
  Receipt Date: 20170213
  Transmission Date: 20170428
  Serious: Yes (Hospitalization, Disabling, Other)
  Sender: FDA-Public Use
  Company Number: US-PFIZER INC-2016345776

PATIENT
  Age: 51 Year
  Sex: Male

DRUGS (5)
  1. ANDROGEL [Suspect]
     Active Substance: TESTOSTERONE
     Indication: HORMONE REPLACEMENT THERAPY
     Dosage: UNK, DAILY
     Dates: start: 2008
  2. LISINOPRIL. [Concomitant]
     Active Substance: LISINOPRIL
     Indication: HYPERTENSION
     Dosage: UNK
     Dates: start: 201302, end: 201507
  3. ANDROGEL [Suspect]
     Active Substance: TESTOSTERONE
     Dosage: UNK, DAILY
     Dates: start: 2011
  4. ZOLPIDEM TARTRATE. [Concomitant]
     Active Substance: ZOLPIDEM TARTRATE
     Indication: INSOMNIA
     Dosage: UNK
     Dates: start: 200911, end: 201502
  5. DEPO-TESTOSTERONE [Suspect]
     Active Substance: TESTOSTERONE CYPIONATE
     Indication: HORMONE REPLACEMENT THERAPY
     Dosage: UNK, TWICE PER MONTH
     Dates: start: 200909, end: 201507

REACTIONS (12)
  - Abasia [Not Recovered/Not Resolved]
  - Transient ischaemic attack [Unknown]
  - Seizure [Not Recovered/Not Resolved]
  - Dysgraphia [Not Recovered/Not Resolved]
  - Activities of daily living impaired [Not Recovered/Not Resolved]
  - Depression [Not Recovered/Not Resolved]
  - Cerebrovascular accident [Unknown]
  - Hemiplegia [Not Recovered/Not Resolved]
  - Hypertension [Not Recovered/Not Resolved]
  - Deep vein thrombosis [Unknown]
  - Impaired work ability [Not Recovered/Not Resolved]
  - Cardiac disorder [Not Recovered/Not Resolved]

NARRATIVE: CASE EVENT DATE: 20140825
